FAERS Safety Report 4634213-0 (Version None)
Quarter: 2005Q2

REPORT INFORMATION
  Report Type: 
  Country: None (occurrence: None)
  Receive Date: 20050325
  Receipt Date: 20050104
  Transmission Date: 20051028
  Serious: No
  Sender: FDA-Public Use
  Company Number: USA030227783

PATIENT
  Age: 82 Year
  Sex: Female
  Weight: 47 kg

DRUGS (5)
  1. FORTEO [Suspect]
     Indication: OSTEOPOROSIS
     Dosage: 20 UG DAY
     Dates: start: 20030101
  2. HYDROCHLOROTHIAZIDE [Concomitant]
  3. ASPIRIN [Concomitant]
  4. VITAMIN C [Concomitant]
  5. CALCIUM GLUCONATE [Concomitant]

REACTIONS (15)
  - CARDIAC DISORDER [None]
  - CAROTID ARTERY OCCLUSION [None]
  - COMPRESSION FRACTURE [None]
  - CONSTIPATION [None]
  - DYSPHAGIA [None]
  - HEART RATE INCREASED [None]
  - HYPERTENSION [None]
  - INJECTION SITE HAEMORRHAGE [None]
  - INJECTION SITE PAIN [None]
  - INJECTION SITE REACTION [None]
  - NAUSEA [None]
  - PAIN [None]
  - STOMACH DISCOMFORT [None]
  - SUBCUTANEOUS NODULE [None]
  - URINARY INCONTINENCE [None]
